FAERS Safety Report 7981560-0 (Version None)
Quarter: 2011Q4

REPORT INFORMATION
  Report Type: 
  Country: None (occurrence: None)
  Receive Date: 20111215
  Receipt Date: 20111213
  Transmission Date: 20120403
  Serious: Yes (Death, Other)
  Sender: FDA-Public Use
  Company Number: FR-PFIZER INC-K201001305

PATIENT
  Age: 70 Year
  Sex: Female

DRUGS (2)
  1. TETANUS VACCINE [Concomitant]
     Dosage: UNK
     Dates: start: 20091101, end: 20091101
  2. ALTACE [Suspect]
     Indication: HYPERTENSION
     Dosage: 1.25 MG, 1X/DAY
     Route: 048
     Dates: start: 20070101, end: 20100601

REACTIONS (8)
  - LYMPHADENOPATHY [None]
  - DYSPNOEA [None]
  - METASTASES TO LUNG [None]
  - METASTASES TO LIVER [None]
  - HEPATIC ENZYME INCREASED [None]
  - MUSCLE SPASMS [None]
  - COUGH [None]
  - METASTATIC MALIGNANT MELANOMA [None]
